FAERS Safety Report 10618945 (Version 2)
Quarter: 2015Q1

REPORT INFORMATION
  Report Type: Report from Study
  Country: US (occurrence: US)
  Receive Date: 20141202
  Receipt Date: 20150105
  Transmission Date: 20150720
  Serious: Yes (Hospitalization)
  Sender: FDA-Public Use
  Company Number: US-JNJFOC-20141116009

PATIENT
  Age: 88 Year
  Sex: Female

DRUGS (11)
  1. IMIPRAMINE [Concomitant]
     Active Substance: IMIPRAMINE
     Indication: INCONTINENCE
     Dosage: SEVERAL YEARS
     Route: 065
  2. ACETAMINOPHEN. [Concomitant]
     Active Substance: ACETAMINOPHEN
     Indication: ARTHRALGIA
     Route: 065
     Dates: end: 2014
  3. FOLIC ACID. [Concomitant]
     Active Substance: FOLIC ACID
     Route: 065
  4. STELARA [Suspect]
     Active Substance: USTEKINUMAB
     Indication: PSORIATIC ARTHROPATHY
     Route: 058
     Dates: start: 20141119
  5. FISH OIL [Concomitant]
     Active Substance: FISH OIL
     Dosage: 360 MG OMEGA 3
  6. CALCIUM WITH VITAMIN D [Concomitant]
     Active Substance: CALCIUM\VITAMIN D
     Dosage: CALCIUM 1200 MG + 1000 IU VITAMIN D
     Route: 065
  7. NAPROXEN. [Concomitant]
     Active Substance: NAPROXEN
     Route: 065
  8. VITAMIN B-COMPLEX WITH VITAMIN C [Concomitant]
     Route: 065
  9. STELARA [Suspect]
     Active Substance: USTEKINUMAB
     Indication: PSORIATIC ARTHROPATHY
     Dosage: 45 MG/0.5 ML
     Route: 058
     Dates: start: 20141009
  10. VAGIFEM [Concomitant]
     Active Substance: ESTRADIOL
     Indication: INCONTINENCE
     Route: 065
  11. DOCUSATE/SENNA [Concomitant]
     Indication: CONSTIPATION
     Dosage: 3-25 MG/DAY
     Route: 065

REACTIONS (2)
  - Pyrexia [Unknown]
  - Cellulitis [Recovered/Resolved]

NARRATIVE: CASE EVENT DATE: 201411
